FAERS Safety Report 6377461-4 (Version None)
Quarter: 2009Q3

REPORT INFORMATION
  Report Type: 
  Country: None (occurrence: None)
  Receive Date: 20090923
  Receipt Date: 20090923
  Transmission Date: 20100115
  Serious: Yes (Hospitalization)
  Sender: FDA-Public Use
  Company Number: None

PATIENT
  Age: 74 Year
  Sex: Male
  Weight: 72.1 kg

DRUGS (10)
  1. WARFARIN SODIUM [Suspect]
     Indication: ATRIAL FIBRILLATION
     Dosage: 2.5MG PO QD
     Route: 048
  2. ASPIRIN [Concomitant]
  3. DILTIAZEM CD [Concomitant]
  4. SIMVASTATIN [Concomitant]
  5. EZETIMBA [Concomitant]
  6. SERTRALINE HCL [Concomitant]
  7. NIACIN [Concomitant]
  8. METOPROLOL SUCCINATE [Concomitant]
  9. ALFUZOSIN HCL [Concomitant]
  10. LOSARTAN [Concomitant]

REACTIONS (3)
  - HAEMOGLOBIN DECREASED [None]
  - MELAENA [None]
  - OCCULT BLOOD POSITIVE [None]
